FAERS Safety Report 6409217-8 (Version None)
Quarter: 2009Q4

REPORT INFORMATION
  Report Type: 
  Country: None (occurrence: None)
  Receive Date: 20091021
  Receipt Date: 20091014
  Transmission Date: 20100525
  Serious: Yes (Hospitalization)
  Sender: FDA-Public Use
  Company Number: FR-AVENTIS-200913803FR

PATIENT
  Age: 66 Year
  Sex: Male
  Weight: 91 kg

DRUGS (11)
  1. AMAREL [Suspect]
     Route: 048
     Dates: start: 20090916, end: 20090925
  2. ORAL ANTIDIABETICS [Suspect]
     Route: 048
     Dates: start: 20090916, end: 20090925
  3. COAPROVEL [Suspect]
     Dates: start: 20090916, end: 20090925
  4. ATORVASTATIN CALCIUM [Concomitant]
     Route: 048
  5. ASPEGIC 1000 [Concomitant]
     Indication: DRUG USE FOR UNKNOWN INDICATION
     Route: 048
     Dates: start: 20090901
  6. AMLODIPINE BESYLATE [Concomitant]
     Indication: DRUG USE FOR UNKNOWN INDICATION
     Route: 048
  7. HYPERIUM                           /00939801/ [Concomitant]
     Indication: DRUG USE FOR UNKNOWN INDICATION
     Route: 048
  8. UVEDOSE [Concomitant]
     Indication: VITAMIN D DEFICIENCY
     Route: 048
     Dates: start: 20090901
  9. CAPTOPRIL AND HYDROCHLOROTHIAZIDE [Concomitant]
     Route: 048
     Dates: end: 20090915
  10. GLUCOPHAGE [Concomitant]
     Indication: DRUG USE FOR UNKNOWN INDICATION
     Route: 048
  11. DAONIL [Concomitant]
     Indication: DRUG USE FOR UNKNOWN INDICATION
     Route: 048
     Dates: end: 20090915

REACTIONS (2)
  - PANCREATITIS ACUTE [None]
  - RENAL FAILURE ACUTE [None]
